FAERS Safety Report 8302367-0 (Version None)
Quarter: 2012Q2

REPORT INFORMATION
  Report Type: 
  Country: None (occurrence: None)
  Receive Date: 20120420
  Receipt Date: 20120416
  Transmission Date: 20120825
  Serious: Yes (Hospitalization, Other)
  Sender: FDA-Public Use
  Company Number: US-BAYER-2010-003111

PATIENT
  Age: 64 Year
  Sex: Male
  Weight: 85 kg

DRUGS (9)
  1. FENTANYL-100 [Concomitant]
     Indication: PAIN
     Dosage: 2400 MCG/24HR, QD
     Route: 062
     Dates: start: 20101115
  2. UROLOGICALS [Concomitant]
     Dosage: 2000 U, QD
     Route: 048
     Dates: start: 20101115
  3. NEXAVAR [Suspect]
     Indication: HEPATIC NEOPLASM MALIGNANT
     Dosage: 600 MG, QD
     Route: 048
     Dates: start: 20101206
  4. OXYCODONE HCL [Concomitant]
     Indication: PAIN
     Dosage: 5 MG, QD
     Route: 048
     Dates: start: 20101115
  5. NORVASC [Concomitant]
     Indication: BLOOD PRESSURE ABNORMAL
     Dosage: 5 MG, QD
     Route: 048
     Dates: start: 20101115
  6. UROLOGICALS [Concomitant]
     Indication: RENAL FAILURE
     Dosage: UNK UNK, UNK
     Dates: start: 20101115
  7. CLONIDINE [Concomitant]
     Indication: BLOOD PRESSURE ABNORMAL
     Dosage: 0.1 MG, QD
     Route: 048
     Dates: start: 20101115
  8. FUROSEMIDE [Concomitant]
     Indication: DIURETIC THERAPY
     Dosage: 80 MG, QD
     Route: 048
     Dates: start: 20101115
  9. OMEPRAZOLE [Concomitant]
     Indication: GASTROOESOPHAGEAL REFLUX DISEASE
     Dosage: 20 MG, QD
     Route: 048
     Dates: start: 20101115

REACTIONS (1)
  - CELLULITIS [None]
